FAERS Safety Report 4351592-2 (Version None)
Quarter: 2004Q2

REPORT INFORMATION
  Report Type: 
  Country: None (occurrence: None)
  Receive Date: 20040503
  Receipt Date: 20040205
  Transmission Date: 20050107
  Serious: Yes (Hospitalization)
  Sender: FDA-Public Use
  Company Number: JP-AMGEN-US066519

PATIENT
  Sex: Female
  Weight: 51.5 kg

DRUGS (7)
  1. ETANERCEPT [Suspect]
     Indication: RHEUMATOID ARTHRITIS
     Route: 058
     Dates: start: 20020711, end: 20040203
  2. PREDNISOLONE [Concomitant]
     Dates: start: 19941201
  3. INDOMETHACIN [Concomitant]
     Dates: start: 20000627
  4. MENATETRENONE [Concomitant]
     Dates: start: 20000627
  5. ZOLPIDEM TARTRATE [Concomitant]
     Dates: start: 20030106
  6. LIPITOR [Concomitant]
     Dates: start: 20030408
  7. KETOPROFEN [Concomitant]
     Dates: start: 20031222

REACTIONS (3)
  - OEDEMA PERIPHERAL [None]
  - SYNOVITIS [None]
  - TENDON RUPTURE [None]
